FAERS Safety Report 5601623-4 (Version None)
Quarter: 2008Q1

REPORT INFORMATION
  Report Type: 
  Country: None (occurrence: None)
  Receive Date: 20080124
  Receipt Date: 20070316
  Transmission Date: 20080703
  Serious: No
  Sender: FDA-Public Use
  Company Number: US-BRISTOL-MYERS SQUIBB COMPANY-13718192

PATIENT
  Age: 31 Year
  Sex: Male

DRUGS (1)
  1. AZACTAM [Suspect]
     Indication: PNEUMONIA
     Dates: start: 20070313, end: 20070314

REACTIONS (1)
  - WHITE BLOOD CELL COUNT DECREASED [None]
